FAERS Safety Report 17461317 (Version 3)
Quarter: 2020Q1

REPORT INFORMATION
  Report Type: Spontaneous
  Country: HU (occurrence: HU)
  Receive Date: 20200226
  Receipt Date: 20200228
  Transmission Date: 20200409
  Serious: Yes (Other)
  Sender: FDA-Public Use
  Company Number: HU-PFIZER INC-2020076129

PATIENT
  Age: 50 Year
  Sex: Female

DRUGS (3)
  1. PURINETHOL [Suspect]
     Active Substance: MERCAPTOPURINE
     Indication: CROHN^S DISEASE
     Dosage: 1.5 MG/KG, DAILY
     Dates: start: 2002
  2. METHYLPREDNISOLONE. [Suspect]
     Active Substance: METHYLPREDNISOLONE
     Indication: CROHN^S DISEASE
     Dosage: 32 MG, DAILY (ONE WEEK BEFORE THE PRESENT ADMISSION)
  3. REMICADE [Suspect]
     Active Substance: INFLIXIMAB
     Indication: CROHN^S DISEASE
     Dosage: 5 MG/KG, UNK (INFUSION)/EPISODIC

REACTIONS (2)
  - Listeriosis [Recovered/Resolved]
  - Encephalitis [Recovered/Resolved]
